FAERS Safety Report 24917322 (Version 1)
Quarter: 2025Q1

REPORT INFORMATION
  Report Type: Spontaneous
  Country: US (occurrence: None)
  Receive Date: 20250202
  Receipt Date: 20250202
  Transmission Date: 20250408
  Serious: Yes (Life-Threatening, Hospitalization)
  Sender: FDA-CTU
  Company Number: None

PATIENT
  Age: 58 Year
  Sex: Male
  Weight: 102 kg

DRUGS (1)
  1. CEFTRIAXONE [Suspect]
     Active Substance: CEFTRIAXONE
     Indication: Infection
     Route: 042
     Dates: start: 20250127

REACTIONS (7)
  - Discomfort [None]
  - Hyperhidrosis [None]
  - Dysphonia [None]
  - Pruritus [None]
  - Hypotension [None]
  - Swollen tongue [None]
  - Epiglottic oedema [None]

NARRATIVE: CASE EVENT DATE: 20250127
